FAERS Safety Report 25708079 (Version 1)
Quarter: 2025Q3

REPORT INFORMATION
  Report Type: Spontaneous
  Country: EU (occurrence: EU)
  Receive Date: 20250820
  Receipt Date: 20250820
  Transmission Date: 20251020
  Serious: Yes (Life-Threatening, Other)
  Sender: ELI LILLY AND COMPANY
  Company Number: None

PATIENT
  Age: 28 Year
  Sex: Female
  Weight: 72 kg

DRUGS (2)
  1. DULOXETINE HYDROCHLORIDE [Suspect]
     Active Substance: DULOXETINE HYDROCHLORIDE
     Indication: Neuralgia
     Dosage: 30 MG, DAILY
     Route: 048
     Dates: start: 20210312
  2. ACETAMINOPHEN [Concomitant]
     Active Substance: ACETAMINOPHEN
     Indication: Product used for unknown indication
     Route: 048

REACTIONS (15)
  - Altered state of consciousness [Recovered/Resolved]
  - Withdrawal syndrome [Recovered/Resolved]
  - Serotonin syndrome [Recovered/Resolved]
  - Anuria [Recovered/Resolved]
  - Hypervigilance [Recovered/Resolved]
  - Muscular weakness [Recovered/Resolved]
  - Influenza like illness [Recovered/Resolved]
  - Mental disorder [Recovered/Resolved]
  - Nipple pain [Recovered/Resolved]
  - Anhidrosis [Recovered/Resolved]
  - Pruritus [Recovered/Resolved]
  - Vision blurred [Recovered/Resolved]
  - Dysuria [Recovered/Resolved]
  - Haematochezia [Recovered/Resolved]
  - Galactorrhoea [Recovered/Resolved]
